FAERS Safety Report 21991883 (Version 1)
Quarter: 2023Q1

REPORT INFORMATION
  Report Type: Spontaneous
  Country: US (occurrence: US)
  Receive Date: 20230214
  Receipt Date: 20230214
  Transmission Date: 20230417
  Serious: No
  Sender: FDA-Public Use
  Company Number: USA--2023-US-000030

PATIENT
  Age: 87 Year
  Sex: Female

DRUGS (5)
  1. LATANOPROST [Suspect]
     Active Substance: LATANOPROST
     Dosage: 1 DROP OU HS
  2. SOTALOL [Concomitant]
     Active Substance: SOTALOL
     Dosage: 80 MG BID
  3. ELIQUIS [Concomitant]
     Active Substance: APIXABAN
  4. Methenam [Concomitant]
  5. PEPCID [Concomitant]
     Active Substance: FAMOTIDINE

REACTIONS (1)
  - Insomnia [Not Recovered/Not Resolved]
